FAERS Safety Report 8820173 (Version 1)
Quarter: 2012Q4

REPORT INFORMATION
  Report Type: 
  Country: BR (occurrence: BR)
  Receive Date: 20121002
  Receipt Date: 20121002
  Transmission Date: 20130627
  Serious: Yes (Other)
  Sender: FDA-Public Use
  Company Number: BR-AMGEN-BRASP2012061272

PATIENT
  Age: 41 Year
  Sex: Female
  Weight: 59 kg

DRUGS (4)
  1. ENBREL [Suspect]
     Indication: RHEUMATOID ARTHRITIS
     Dosage: 50 mg, weekly
     Route: 058
     Dates: start: 201109
  2. ENBREL [Suspect]
     Dosage: UNK
     Dates: start: 2011
  3. METHOTREXATE [Concomitant]
     Dosage: UNK
  4. CALCIUM CARBONATE [Concomitant]
     Dosage: UNK

REACTIONS (4)
  - Immunosuppression [Unknown]
  - Secretion discharge [Unknown]
  - Furuncle [Unknown]
  - Injection site pain [Unknown]
